FAERS Safety Report 4330452-7 (Version None)
Quarter: 2004Q1

REPORT INFORMATION
  Report Type: 
  Country: None (occurrence: None)
  Receive Date: 20040330
  Receipt Date: 20040317
  Transmission Date: 20041129
  Serious: Yes (Hospitalization)
  Sender: FDA-Public Use
  Company Number: UK065894

PATIENT
  Age: 58 Year
  Sex: Female

DRUGS (3)
  1. NEUPOGEN [Suspect]
     Indication: CHEMOTHERAPY
     Dosage: 300 MCG, 1 IN 1 DAYS, SC
     Route: 058
     Dates: start: 20021201, end: 20021206
  2. DOXORUBICIN HYDROCHLORIDE [Suspect]
     Dosage: 50 MG/M2, 1 IN 1 DAYS, SC
     Route: 058
     Dates: start: 20021101
  3. DOCETAXEL [Suspect]
     Dosage: 75 MG/M2, 1 IN 3 WEEK,S IV
     Route: 042
     Dates: start: 20021101

REACTIONS (7)
  - ANAEMIA [None]
  - BACTERAEMIA [None]
  - ESCHERICHIA INFECTION [None]
  - FEBRILE NEUTROPENIA [None]
  - MUCOSAL INFLAMMATION [None]
  - STAPHYLOCOCCAL INFECTION [None]
  - THROMBOCYTOPENIA [None]
